FAERS Safety Report 18812009 (Version 1)
Quarter: 2021Q1

REPORT INFORMATION
  Report Type: Spontaneous
  Country: US (occurrence: US)
  Receive Date: 20210129
  Receipt Date: 20210129
  Transmission Date: 20210419
  Serious: Yes (Hospitalization)
  Sender: FDA-Public Use
  Company Number: US-ELI_LILLY_AND_COMPANY-US202101011124

PATIENT
  Age: 52 Year
  Sex: Female

DRUGS (2)
  1. HUMALOG [Suspect]
     Active Substance: INSULIN LISPRO
     Indication: TYPE 2 DIABETES MELLITUS
     Dosage: UNK UNK, PRN
     Route: 058
  2. BASAGLAR [Suspect]
     Active Substance: INSULIN GLARGINE
     Indication: TYPE 2 DIABETES MELLITUS
     Dosage: 50 U, BID
     Route: 058

REACTIONS (14)
  - Cardiac failure [Unknown]
  - Stress [Unknown]
  - Inappropriate schedule of product administration [Unknown]
  - Intracranial aneurysm [Unknown]
  - Fatigue [Not Recovered/Not Resolved]
  - Cerebrovascular accident [Unknown]
  - Illness [Not Recovered/Not Resolved]
  - Fear [Unknown]
  - Pain [Not Recovered/Not Resolved]
  - Headache [Not Recovered/Not Resolved]
  - Blood glucose increased [Unknown]
  - Migraine [Unknown]
  - Blood glucose abnormal [Unknown]
  - Blood pressure increased [Unknown]

NARRATIVE: CASE EVENT DATE: 20171221
